FAERS Safety Report 10151829 (Version 1)
Quarter: 2014Q2

REPORT INFORMATION
  Report Type: Report from Study
  Country: JP (occurrence: JP)
  Receive Date: 20140505
  Receipt Date: 20140505
  Transmission Date: 20141212
  Serious: Yes (Hospitalization)
  Sender: FDA-Public Use
  Company Number: JP-ROCHE-1391077

PATIENT
  Age: 66 Year
  Sex: Female
  Weight: 44 kg

DRUGS (11)
  1. ACTEMRA [Suspect]
     Indication: RHEUMATOID ARTHRITIS
     Route: 041
     Dates: start: 20121203
  2. PREDNISOLONE [Concomitant]
     Indication: RHEUMATOID ARTHRITIS
     Route: 048
     Dates: end: 20130430
  3. PREDNISOLONE [Concomitant]
     Indication: RHEUMATOID ARTHRITIS
     Dosage: 7.5MG AND 6.25MG ARE ALTERNATE.
     Route: 048
     Dates: start: 20130501, end: 20131006
  4. PREDNISOLONE [Concomitant]
     Indication: RHEUMATOID ARTHRITIS
     Route: 048
     Dates: start: 20131007
  5. SELBEX [Concomitant]
     Indication: PROPHYLAXIS
     Dosage: DOSAGE IS UNCERTAIN.
     Route: 048
  6. SLOW-K [Concomitant]
     Dosage: DOSAGE IS UNCERTAIN.
     Route: 048
  7. MAINTATE [Concomitant]
     Dosage: DOSAGE IS UNCERTAIN.
     Route: 048
  8. BERIZYM [Concomitant]
     Dosage: DOSAGE IS UNCERTAIN.
     Route: 048
  9. MYSLEE [Concomitant]
     Dosage: DOSAGE IS UNCERTAIN.
     Route: 048
  10. LAC-B [Concomitant]
     Dosage: DOSAGE IS UNCERTAIN.
     Route: 048
  11. TRANSAMIN [Concomitant]
     Dosage: DOSAGE IS UNCERTAIN.
     Route: 048
     Dates: end: 20130205

REACTIONS (4)
  - Diverticulum intestinal haemorrhagic [Recovered/Resolved]
  - Alopecia [Recovered/Resolved]
  - Tinnitus [Recovered/Resolved]
  - Rotator cuff syndrome [Recovered/Resolved]
